FAERS Safety Report 10348009 (Version 1)
Quarter: 2014Q3

REPORT INFORMATION
  Report Type: Spontaneous
  Country: US (occurrence: None)
  Receive Date: 20140725
  Receipt Date: 20140725
  Transmission Date: 20150326
  Serious: Yes (Other)
  Sender: FDA-Public Use
  Company Number: 2014-US-006717

PATIENT
  Age: 73 Year
  Sex: Male
  Weight: 98.4 kg

DRUGS (4)
  1. XYREM [Suspect]
     Active Substance: SODIUM OXYBATE
     Indication: INSOMNIA
     Route: 048
     Dates: start: 200508, end: 2005
  2. XYREM [Suspect]
     Active Substance: SODIUM OXYBATE
     Indication: ABNORMAL BEHAVIOUR
     Route: 048
     Dates: start: 200508, end: 2005
  3. ATIVAN [Concomitant]
     Active Substance: LORAZEPAM
  4. VALIUM [Concomitant]
     Active Substance: DIAZEPAM

REACTIONS (2)
  - Sleep apnoea syndrome [None]
  - Off label use [None]
